FAERS Safety Report 7799481-5 (Version None)
Quarter: 2011Q4

REPORT INFORMATION
  Report Type: 
  Country: None (occurrence: None)
  Receive Date: 20111006
  Receipt Date: 20110930
  Transmission Date: 20120403
  Serious: Yes (Death, Other)
  Sender: FDA-Public Use
  Company Number: PHHY2011PK86273

PATIENT
  Age: 58 Year
  Sex: Female
  Weight: 105 kg

DRUGS (2)
  1. ATENOLOL [Concomitant]
     Indication: HYPERTENSION
     Dosage: 25 MG, BID
     Dates: start: 20101026
  2. AMLODIPINE BESYLATE/VALSARTAN [Suspect]
     Route: 048
     Dates: start: 20101026

REACTIONS (4)
  - MICROALBUMINURIA [None]
  - BLOOD UREA INCREASED [None]
  - BLOOD GLUCOSE INCREASED [None]
  - MYOCARDIAL ISCHAEMIA [None]
